FAERS Safety Report 5515513-9 (Version None)
Quarter: 2007Q4

REPORT INFORMATION
  Report Type: 
  Country: None (occurrence: None)
  Receive Date: 20071113
  Receipt Date: 20070313
  Transmission Date: 20080405
  Serious: No
  Sender: FDA-Public Use
  Company Number: A0643065A

PATIENT
  Age: 67 Year
  Sex: Female

DRUGS (1)
  1. COREG [Suspect]
     Indication: HYPERTENSION
     Dosage: 3.125MG TWICE PER DAY
     Route: 048
     Dates: start: 20070302

REACTIONS (4)
  - BACK DISORDER [None]
  - CONSTIPATION [None]
  - DIARRHOEA [None]
  - DRUG INEFFECTIVE [None]
